FAERS Safety Report 19881228 (Version 4)
Quarter: 2021Q4

REPORT INFORMATION
  Report Type: Report from Study
  Country: CO (occurrence: CO)
  Receive Date: 20210925
  Receipt Date: 20211124
  Transmission Date: 20220304
  Serious: Yes (Hospitalization, Other)
  Sender: FDA-Public Use
  Company Number: CO-SA-SAC20210922001302

PATIENT
  Age: 61 Year
  Sex: Male

DRUGS (2)
  1. AGALSIDASE BETA [Suspect]
     Active Substance: AGALSIDASE BETA
     Indication: Fabry^s disease
     Dosage: 55 MG, Q15D
     Route: 042
     Dates: start: 20160412
  2. APIXABAN [Concomitant]
     Active Substance: APIXABAN
     Dosage: 5 MG, QD

REACTIONS (9)
  - Delirium [Recovering/Resolving]
  - Abnormal behaviour [Recovering/Resolving]
  - Incoherent [Recovering/Resolving]
  - Cerebrovascular accident [Unknown]
  - Depression [Recovering/Resolving]
  - Eating disorder [Recovering/Resolving]
  - Insomnia [Recovering/Resolving]
  - Memory impairment [Unknown]
  - Delusion [Unknown]

NARRATIVE: CASE EVENT DATE: 20190101
